FAERS Safety Report 9785157 (Version 1)
Quarter: 2013Q4

REPORT INFORMATION
  Report Type: Spontaneous
  Country: DE (occurrence: DE)
  Receive Date: 20131227
  Receipt Date: 20131227
  Transmission Date: 20140711
  Serious: Yes (Other)
  Sender: FDA-Public Use
  Company Number: DE-DRREDDYS-GER/GER/13/0036659

PATIENT
  Age: 24 Year
  Sex: Female

DRUGS (4)
  1. OLANZAPINE [Suspect]
     Indication: SCHIZOPHRENIA
     Route: 048
  2. LORAZEPAM [Suspect]
     Indication: SCHIZOPHRENIA
     Route: 048
  3. DOPEGYT [Concomitant]
     Indication: HYPERTENSION
     Route: 048
  4. AMOXICILLIN [Concomitant]
     Indication: BACTERIAL INFECTION
     Route: 048

REACTIONS (3)
  - Psychotic disorder [Unknown]
  - Caesarean section [Unknown]
  - Exposure during pregnancy [Unknown]
